FAERS Safety Report 25017443 (Version 1)
Quarter: 2025Q1

REPORT INFORMATION
  Report Type: Spontaneous
  Country: US (occurrence: None)
  Receive Date: 20250226
  Receipt Date: 20250226
  Transmission Date: 20250409
  Serious: Yes (Other)
  Sender: FDA-CTU
  Company Number: None

PATIENT
  Sex: Male

DRUGS (3)
  1. SKYRIZI [Suspect]
     Active Substance: RISANKIZUMAB-RZAA
     Indication: Psoriasis
     Route: 058
     Dates: start: 20240419
  2. ADVIL TAB 200MG [Concomitant]
  3. GABAPENTIN CAP 400MG [Concomitant]

REACTIONS (3)
  - Plasma cell myeloma [None]
  - Stem cell transplant [None]
  - Therapy interrupted [None]
